FAERS Safety Report 12607329 (Version 1)
Quarter: 2016Q3

REPORT INFORMATION
  Report Type: Spontaneous
  Country: US (occurrence: US)
  Receive Date: 20160729
  Receipt Date: 20160729
  Transmission Date: 20161109
  Serious: Yes (Hospitalization, Other)
  Sender: FDA-Public Use
  Company Number: US-AMGEN-USASP2016094702

PATIENT
  Age: 69 Year
  Sex: Male

DRUGS (3)
  1. ARANESP [Suspect]
     Active Substance: DARBEPOETIN ALFA
     Dosage: 60 UNK, UNK
     Route: 065
     Dates: start: 20160323
  2. PROCRIT [Suspect]
     Active Substance: ERYTHROPOIETIN
     Indication: PRODUCT USED FOR UNKNOWN INDICATION
     Dosage: UNK
     Route: 065
  3. ARANESP [Suspect]
     Active Substance: DARBEPOETIN ALFA
     Indication: HAEMOGLOBIN DECREASED
     Dosage: UNK
     Route: 065
     Dates: start: 201505

REACTIONS (17)
  - Serratia infection [Unknown]
  - Asthenia [Unknown]
  - Transfusion [Unknown]
  - Haemoglobin decreased [Unknown]
  - Fall [Unknown]
  - Haemodialysis [Unknown]
  - Swelling face [Unknown]
  - Hypotension [Unknown]
  - Decreased appetite [Unknown]
  - Diarrhoea [Unknown]
  - Pyrexia [Unknown]
  - Skin burning sensation [Unknown]
  - Rash generalised [Unknown]
  - Malaise [Not Recovered/Not Resolved]
  - Escherichia infection [Unknown]
  - Productive cough [Not Recovered/Not Resolved]
  - Haemoptysis [Unknown]

NARRATIVE: CASE EVENT DATE: 201509
